FAERS Safety Report 24422772 (Version 2)
Quarter: 2024Q4

REPORT INFORMATION
  Report Type: Spontaneous
  Country: GR (occurrence: GR)
  Receive Date: 20241010
  Receipt Date: 20241016
  Transmission Date: 20250115
  Serious: No
  Sender: BAYER HEALTHCARE PHARMACEUTICALS INC.
  Company Number: GR-BAYER-2024A141251

PATIENT
  Age: 40 Year
  Sex: Female

DRUGS (1)
  1. GADOBUTROL [Suspect]
     Active Substance: GADOBUTROL
     Dosage: 7.5 ML, ONCE
     Route: 042
     Dates: start: 20241002, end: 20241002

REACTIONS (3)
  - Rash [Recovering/Resolving]
  - Acne [Recovering/Resolving]
  - Pain of skin [Recovering/Resolving]
